FAERS Safety Report 13423951 (Version 3)
Quarter: 2017Q2

REPORT INFORMATION
  Report Type: Spontaneous
  Country: JP (occurrence: JP)
  Receive Date: 20170410
  Receipt Date: 20170420
  Transmission Date: 20170830
  Serious: Yes (Death, Other)
  Sender: FDA-Public Use
  Company Number: JP-PFIZER INC-2017154765

PATIENT
  Age: 80 Year
  Sex: Male

DRUGS (1)
  1. RHEUMATREX [Suspect]
     Active Substance: METHOTREXATE SODIUM
     Indication: RHEUMATOID ARTHRITIS
     Dosage: 4 MG, WEEKLY
     Route: 048

REACTIONS (1)
  - White blood cell count decreased [Fatal]

NARRATIVE: CASE EVENT DATE: 20170404
